FAERS Safety Report 9303928 (Version 1)
Quarter: 2013Q2

REPORT INFORMATION
  Report Type: Spontaneous
  Country: FR (occurrence: FR)
  Receive Date: 20130522
  Receipt Date: 20130522
  Transmission Date: 20140414
  Serious: Yes (Life-Threatening, Hospitalization)
  Sender: FDA-Public Use
  Company Number: FR-TEVA-406343ISR

PATIENT
  Age: 70 Year
  Sex: Female
  Weight: 65 kg

DRUGS (5)
  1. METFORMIN [Suspect]
     Dosage: 3000 MILLIGRAM DAILY;
  2. INDAPAMIDE [Suspect]
     Indication: POSTOPERATIVE ANALGESIA
     Dosage: 2.5 MILLIGRAM DAILY;
  3. KETOPROFEN [Suspect]
     Indication: POSTOPERATIVE ANALGESIA
     Dosage: 300 MILLIGRAM DAILY;
     Route: 042
  4. PARACETAMOL [Concomitant]
     Indication: POSTOPERATIVE ANALGESIA
     Dosage: 4000 MILLIGRAM DAILY;
     Route: 042
  5. MORPHINE [Concomitant]
     Indication: POSTOPERATIVE ANALGESIA
     Dosage: 40 MILLIGRAM DAILY;
     Route: 058

REACTIONS (2)
  - Lactic acidosis [Recovering/Resolving]
  - Renal failure acute [Recovering/Resolving]
